FAERS Safety Report 9344051 (Version 2)
Quarter: 2013Q3

REPORT INFORMATION
  Report Type: Spontaneous
  Country: US (occurrence: US)
  Receive Date: 20130612
  Receipt Date: 20130702
  Transmission Date: 20140515
  Serious: Yes (Other)
  Sender: FDA-Public Use
  Company Number: US-PFIZER INC-2013176198

PATIENT
  Age: 61 Year
  Sex: Female
  Weight: 70.3 kg

DRUGS (3)
  1. LYRICA [Suspect]
     Indication: NEUROPATHY PERIPHERAL
     Dosage: 75 MG, 1X/DAY
     Route: 048
     Dates: start: 2005, end: 201306
  2. METOPROLOL [Concomitant]
     Dosage: UNK
  3. LISINOPRIL [Concomitant]
     Dosage: UNK

REACTIONS (7)
  - Diabetes mellitus [Unknown]
  - Pain [Unknown]
  - Burning sensation [Unknown]
  - Balance disorder [Unknown]
  - Hypertension [Unknown]
  - Vision blurred [Unknown]
  - Insomnia [Unknown]
